FAERS Safety Report 22938321 (Version 3)
Quarter: 2023Q4

REPORT INFORMATION
  Report Type: Spontaneous
  Country: CA (occurrence: None)
  Receive Date: 20230913
  Receipt Date: 20231110
  Transmission Date: 20240109
  Serious: Yes (Other)
  Sender: FDA-Public Use
  Company Number: CA-PFIZER INC-202300294369

PATIENT
  Age: 77 Year
  Sex: Female

DRUGS (10)
  1. METHOTREXATE [Suspect]
     Active Substance: METHOTREXATE
     Indication: Rheumatoid arthritis
     Dosage: 2.5 MG/TABLET, 3 TABLETS ONCE A WEEK
  2. METHOTREXATE [Suspect]
     Active Substance: METHOTREXATE
     Dates: start: 20221130
  3. AMLODIPINE BESYLATE [Concomitant]
     Active Substance: AMLODIPINE BESYLATE
  4. FOLIC ACID [Concomitant]
     Active Substance: FOLIC ACID
     Dates: start: 20221130
  5. PREGABALIN [Concomitant]
     Active Substance: PREGABALIN
     Dosage: 50
  6. HUMIRA [Concomitant]
     Active Substance: ADALIMUMAB
     Dosage: 0.8 ML(40 MG ONCE EVERY TWO WEEKS X 3 WEEK(S))
     Dates: start: 20230202
  7. HUMIRA [Concomitant]
     Active Substance: ADALIMUMAB
     Dates: start: 202304
  8. LORAZEPAM [Concomitant]
     Active Substance: LORAZEPAM
     Dosage: 1 MG
  9. PREMARIN [Concomitant]
     Active Substance: ESTROGENS, CONJUGATED
  10. DEPO-MEDROL [Concomitant]
     Active Substance: METHYLPREDNISOLONE ACETATE
     Dosage: 40 MG/ML VIAL

REACTIONS (7)
  - Acute hepatitis C [Recovered/Resolved]
  - Ligament sprain [Unknown]
  - Joint swelling [Not Recovered/Not Resolved]
  - Arthralgia [Unknown]
  - Osteoarthritis [Unknown]
  - Fatigue [Unknown]
  - Influenza [Not Recovered/Not Resolved]

NARRATIVE: CASE EVENT DATE: 20230101
